FAERS Safety Report 8909336 (Version 1)
Quarter: 2012Q4

REPORT INFORMATION
  Report Type: 
  Country: GB (occurrence: GB)
  Receive Date: 20121114
  Receipt Date: 20121114
  Transmission Date: 20130627
  Serious: Yes (Life-Threatening, Hospitalization)
  Sender: FDA-Public Use
  Company Number: GB-AMGEN-GBRSP2012071946

PATIENT
  Age: 69 Year
  Sex: Female
  Weight: 94 kg

DRUGS (16)
  1. ENBREL [Suspect]
     Indication: RHEUMATOID ARTHRITIS
     Dosage: 25 mg, 2 times/wk
     Route: 058
     Dates: start: 200612
  2. METHOTREXATE [Concomitant]
     Dosage: UNK
  3. FOLIC ACID [Concomitant]
     Dosage: UNK
  4. AMITRIPTYLINE [Concomitant]
     Dosage: UNK
  5. ACETAMINOPHEN [Concomitant]
     Dosage: UNK
  6. THYROXINE [Concomitant]
     Dosage: UNK
  7. ATORVASTATIN [Concomitant]
     Dosage: UNK
  8. VALSARTAN [Concomitant]
     Dosage: UNK
  9. SYMBICORT [Concomitant]
     Dosage: UNK
  10. AMLODIPINE [Concomitant]
     Dosage: UNK
  11. DOXAZOSIN [Concomitant]
     Dosage: UNK
  12. TIOTROPIUM [Concomitant]
     Dosage: UNK
  13. SPIRIVA [Concomitant]
     Dosage: UNK
  14. SALBUTAMOL [Concomitant]
     Dosage: UNK
  15. CALCICHEW [Concomitant]
     Dosage: UNK
  16. DIAZEPAM [Concomitant]
     Dosage: Taken as needed

REACTIONS (7)
  - Acute myocardial infarction [Recovering/Resolving]
  - Chest discomfort [Recovered/Resolved]
  - Coronary artery disease [Unknown]
  - Coronary artery stenosis [Unknown]
  - Arteriosclerosis coronary artery [Unknown]
  - Coronary artery occlusion [Unknown]
  - Oedema peripheral [Unknown]
